FAERS Safety Report 18264081 (Version 1)
Quarter: 2020Q3

REPORT INFORMATION
  Report Type: Spontaneous
  Country: US (occurrence: US)
  Receive Date: 20200914
  Receipt Date: 20200914
  Transmission Date: 20201103
  Serious: No
  Sender: FDA-Public Use
  Company Number: US-TEVA-2020-US-1828023

PATIENT

DRUGS (2)
  1. BOSULIF PFIZER LABS [Concomitant]
     Indication: CHRONIC MYELOID LEUKAEMIA
     Route: 048
     Dates: start: 20180815
  2. CEFALEXIN [Suspect]
     Active Substance: CEPHALEXIN
     Indication: ORAL CANDIDIASIS
     Route: 065
     Dates: start: 202004, end: 2020

REACTIONS (2)
  - Flushing [Recovered/Resolved]
  - Chest discomfort [Recovered/Resolved]

NARRATIVE: CASE EVENT DATE: 2020
